FAERS Safety Report 10882126 (Version 1)
Quarter: 2015Q1

REPORT INFORMATION
  Report Type: Spontaneous
  Country: US (occurrence: None)
  Receive Date: 20150226
  Receipt Date: 20150226
  Transmission Date: 20150721
  Serious: No
  Sender: FDA-Public Use
  Company Number: None

PATIENT
  Age: 23 Year
  Sex: Female

DRUGS (6)
  1. MAKENA [Suspect]
     Active Substance: HYDROXYPROGESTERONE CAPROATE
     Indication: PREGNANCY
     Route: 030
     Dates: start: 20150105, end: 20150217
  2. HYDROCODONE [Concomitant]
     Active Substance: HYDROCODONE
  3. MICONAZOLE [Concomitant]
     Active Substance: MICONAZOLE
  4. PRENATAL TAB [Concomitant]
  5. NIFEDICAL XL [Concomitant]
     Active Substance: NIFEDIPINE
  6. HYDROZYAINE POMOATE [Concomitant]

REACTIONS (1)
  - Abortion spontaneous [None]

NARRATIVE: CASE EVENT DATE: 20150221
